FAERS Safety Report 22132640 (Version 1)
Quarter: 2023Q1

REPORT INFORMATION
  Report Type: Spontaneous
  Country: PL (occurrence: PL)
  Receive Date: 20230323
  Receipt Date: 20230323
  Transmission Date: 20230418
  Serious: Yes (Other)
  Sender: FDA-Public Use
  Company Number: PL-002147023-NVSC2021PL315940

PATIENT
  Sex: Female

DRUGS (2)
  1. METHOTREXATE [Suspect]
     Active Substance: METHOTREXATE
     Indication: Chronic graft versus host disease
     Dosage: UNK
     Route: 065
     Dates: start: 20211010
  2. PREDNISONE [Suspect]
     Active Substance: PREDNISONE
     Indication: Product used for unknown indication
     Dosage: UNK
     Route: 065

REACTIONS (5)
  - Chronic graft versus host disease [Unknown]
  - Scleroderma [Unknown]
  - Dry eye [Unknown]
  - Mucosal disorder [Unknown]
  - Product use in unapproved indication [Unknown]
